APPROVED DRUG PRODUCT: MIRTAZAPINE
Active Ingredient: MIRTAZAPINE
Strength: 45MG
Dosage Form/Route: TABLET;ORAL
Application: A076270 | Product #003
Applicant: ROXANE LABORATORIES INC
Approved: Jun 19, 2003 | RLD: No | RS: No | Type: DISCN